FAERS Safety Report 24293534 (Version 1)
Quarter: 2024Q3

REPORT INFORMATION
  Report Type: Spontaneous
  Country: US (occurrence: None)
  Receive Date: 20240906
  Receipt Date: 20240906
  Transmission Date: 20241016
  Serious: No
  Sender: DOMPE FARMACEUTICI
  Company Number: US-FARMAPROD-202308-202401-0292

PATIENT
  Sex: Male

DRUGS (9)
  1. OXERVATE [Suspect]
     Active Substance: CENEGERMIN-BKBJ
     Indication: Neurotrophic keratopathy
     Route: 047
     Dates: start: 20231220
  2. OXERVATE [Suspect]
     Active Substance: CENEGERMIN-BKBJ
  3. FLONASE ALLERGY RELIEF [Concomitant]
     Active Substance: FLUTICASONE PROPIONATE
  4. ALLERGY-CONGESTION RELIEF-D [Concomitant]
  5. UNSPECIFIED INGREDIENT [Concomitant]
     Active Substance: UNSPECIFIED INGREDIENT
  6. PREDNISONE [Concomitant]
     Active Substance: PREDNISONE
  7. DEXAMETHASONE\TOBRAMYCIN [Concomitant]
     Active Substance: DEXAMETHASONE\TOBRAMYCIN
  8. SEROQUEL XR [Concomitant]
     Active Substance: QUETIAPINE FUMARATE
     Dosage: EXTENDED RELEASE 24 HOURS
  9. DOXYCYCLINE HYCLATE [Concomitant]
     Active Substance: DOXYCYCLINE HYCLATE

REACTIONS (1)
  - Sinusitis [Unknown]
